FAERS Safety Report 7051885-4 (Version None)
Quarter: 2010Q4

REPORT INFORMATION
  Report Type: 
  Country: None (occurrence: None)
  Receive Date: 20101019
  Receipt Date: 20101014
  Transmission Date: 20110411
  Serious: Yes (Life-Threatening, Other)
  Sender: FDA-Public Use
  Company Number: GB-JNJFOC-20101004131

PATIENT
  Age: 54 Year
  Sex: Female
  Weight: 73.6 kg

DRUGS (4)
  1. GOLIMUMAB [Suspect]
     Indication: RHEUMATOID ARTHRITIS
     Route: 058
  2. METHOTREXATE [Concomitant]
     Indication: RHEUMATOID ARTHRITIS
     Route: 048
  3. FOLIC ACID [Concomitant]
     Indication: UNEVALUABLE EVENT
     Route: 048
  4. PREDNISOLONE [Concomitant]
     Indication: UNEVALUABLE EVENT

REACTIONS (1)
  - BREAST CANCER IN SITU [None]
